FAERS Safety Report 25900322 (Version 2)
Quarter: 2025Q4

REPORT INFORMATION
  Report Type: Spontaneous
  Country: EU (occurrence: EU)
  Receive Date: 20251009
  Receipt Date: 20251015
  Transmission Date: 20260118
  Serious: Yes (Other)
  Sender: DR REDDYS
  Company Number: None

PATIENT
  Age: 48 Year
  Sex: Male
  Weight: 78.5 kg

DRUGS (62)
  1. PREGABALIN [Suspect]
     Active Substance: PREGABALIN
     Indication: Product used for unknown indication
     Dosage: 25 MG, DAILY
     Dates: start: 20250507, end: 20250507
  2. PREGABALIN [Suspect]
     Active Substance: PREGABALIN
     Dosage: 75 MG, DAILY
     Dates: start: 20250508, end: 20250508
  3. PREGABALIN [Suspect]
     Active Substance: PREGABALIN
     Dosage: 125 MG, DAILY
     Dates: start: 20250509, end: 20250509
  4. PREGABALIN [Suspect]
     Active Substance: PREGABALIN
     Dosage: 150 MG, DAILY
     Dates: start: 20250510, end: 20250512
  5. PREGABALIN [Suspect]
     Active Substance: PREGABALIN
     Dosage: 200 MG, DAILY
     Dates: start: 20250513, end: 20250513
  6. PREGABALIN [Suspect]
     Active Substance: PREGABALIN
     Dosage: 225 MG, DAILY
     Dates: start: 20250514, end: 20250514
  7. PREGABALIN [Suspect]
     Active Substance: PREGABALIN
     Dosage: 250 MG, DAILY
     Dates: start: 20250515, end: 20250519
  8. PREGABALIN [Suspect]
     Active Substance: PREGABALIN
     Dosage: 300 MG, DAILY
     Dates: start: 20250520, end: 20250520
  9. PREGABALIN [Suspect]
     Active Substance: PREGABALIN
     Dosage: 325 MG, DAILY
     Dates: start: 20250521, end: 20250521
  10. PREGABALIN [Suspect]
     Active Substance: PREGABALIN
     Dosage: 350 MG, DAILY
     Dates: start: 20250522, end: 20250527
  11. PREGABALIN [Suspect]
     Active Substance: PREGABALIN
     Dosage: 400 MG, DAILY
     Dates: start: 20250528, end: 20250601
  12. PREGABALIN [Suspect]
     Active Substance: PREGABALIN
     Dosage: 450 MG, DAILY
     Dates: start: 20250602, end: 20250602
  13. PREGABALIN [Suspect]
     Active Substance: PREGABALIN
     Dosage: 500 MG, DAILY
     Dates: start: 20250603, end: 20250604
  14. PREGABALIN [Suspect]
     Active Substance: PREGABALIN
     Dosage: 600 MG, DAILY
     Dates: start: 20250605, end: 20250804
  15. PREGABALIN [Suspect]
     Active Substance: PREGABALIN
     Dosage: 525 MG, DAILY
     Dates: start: 20250805, end: 20250807
  16. PREGABALIN [Suspect]
     Active Substance: PREGABALIN
     Dosage: 450 MG, DAILY
     Dates: start: 20250808, end: 20250812
  17. PREGABALIN [Suspect]
     Active Substance: PREGABALIN
     Dosage: 375 MG, DAILY
     Dates: start: 20250813, end: 20250828
  18. PREGABALIN [Suspect]
     Active Substance: PREGABALIN
     Dosage: 300 MG, DAILY
     Dates: start: 20250829, end: 20250905
  19. KETOTIFEN [Suspect]
     Active Substance: KETOTIFEN
     Indication: Product used for unknown indication
     Dosage: 2 MG, DAILY
     Dates: start: 20250507, end: 20250715
  20. XYZAL [Suspect]
     Active Substance: LEVOCETIRIZINE DIHYDROCHLORIDE
     Indication: Product used for unknown indication
     Dosage: 10 MG, DAILY
     Dates: start: 20250507, end: 20250905
  21. VENLAFAXINE HYDROCHLORIDE [Suspect]
     Active Substance: VENLAFAXINE HYDROCHLORIDE
     Indication: Product used for unknown indication
     Dosage: 150 MG, DAILY
     Dates: start: 20250515, end: 20250729
  22. VENLAFAXINE HYDROCHLORIDE [Suspect]
     Active Substance: VENLAFAXINE HYDROCHLORIDE
     Dosage: 75 MG, DAILY?START DATE^ 08-MAY-2025
     Dates: end: 20250514
  23. VENLAFAXINE HYDROCHLORIDE [Suspect]
     Active Substance: VENLAFAXINE HYDROCHLORIDE
     Dosage: 187.5 MG, DAILY
     Dates: start: 20250730, end: 20250814
  24. VENLAFAXINE HYDROCHLORIDE [Suspect]
     Active Substance: VENLAFAXINE HYDROCHLORIDE
     Dosage: 150 MG, DAILY
     Dates: start: 20250815, end: 20250905
  25. MIRTAZAPINE [Suspect]
     Active Substance: MIRTAZAPINE
     Indication: Product used for unknown indication
     Dosage: 45 MG, DAILY
     Dates: start: 20250507, end: 20250810
  26. MIRTAZAPINE [Suspect]
     Active Substance: MIRTAZAPINE
     Dosage: 30 MG, DAILY
     Dates: start: 20250811, end: 20250905
  27. ARIPIPRAZOLE [Suspect]
     Active Substance: ARIPIPRAZOLE
     Indication: Product used for unknown indication
     Dates: start: 20250507, end: 20250516
  28. ARIPIPRAZOLE [Suspect]
     Active Substance: ARIPIPRAZOLE
     Dates: start: 20250517, end: 20250905
  29. GINKGO [Suspect]
     Active Substance: GINKGO
     Indication: Product used for unknown indication
     Dates: start: 20250507, end: 20250618
  30. MELATONIN [Suspect]
     Active Substance: MELATONIN
     Indication: Product used for unknown indication
     Dates: start: 20250507, end: 20250729
  31. MELATONIN [Suspect]
     Active Substance: MELATONIN
     Dates: start: 20250730, end: 20250905
  32. ASTEMIZOLE [Suspect]
     Active Substance: ASTEMIZOLE
     Indication: Product used for unknown indication
     Dosage: START DATE 16-MAY-2025?2 MG, DAILY
     Dates: end: 20250609
  33. ASTEMIZOLE [Suspect]
     Active Substance: ASTEMIZOLE
     Dosage: 1.75 MG, DAILY
     Dates: start: 20250610, end: 20250611
  34. ASTEMIZOLE [Suspect]
     Active Substance: ASTEMIZOLE
     Dosage: 1.5 MG, DAILY
     Dates: start: 20250612, end: 20250614
  35. ASTEMIZOLE [Suspect]
     Active Substance: ASTEMIZOLE
     Dosage: 1.25 MG, DAILY
     Dates: start: 20250615, end: 20250618
  36. ASTEMIZOLE [Suspect]
     Active Substance: ASTEMIZOLE
     Dosage: 1 MG, DAILY
     Dates: start: 20250619, end: 20250715
  37. IVABRADINE [Suspect]
     Active Substance: IVABRADINE
     Indication: Product used for unknown indication
     Dosage: 2.5 MG, DAILY
     Dates: start: 20250507, end: 20250519
  38. IVABRADINE [Suspect]
     Active Substance: IVABRADINE
     Dosage: 5 MG, DAILY
     Dates: start: 20250520, end: 20250715
  39. KETAMINE HYDROCHLORIDE [Suspect]
     Active Substance: KETAMINE HYDROCHLORIDE
     Indication: Product used for unknown indication
     Dosage: START DATE:31-JUL-2025
     Dates: end: 20250731
  40. KETAMINE HYDROCHLORIDE [Suspect]
     Active Substance: KETAMINE HYDROCHLORIDE
     Dates: start: 20250513, end: 20250513
  41. KETAMINE HYDROCHLORIDE [Suspect]
     Active Substance: KETAMINE HYDROCHLORIDE
     Dosage: 50 MG, DAILY
     Dates: start: 20250714, end: 20250714
  42. KETAMINE HYDROCHLORIDE [Suspect]
     Active Substance: KETAMINE HYDROCHLORIDE
     Dosage: 50 MG, DAILY
     Dates: start: 20250721, end: 20250721
  43. KETAMINE HYDROCHLORIDE [Suspect]
     Active Substance: KETAMINE HYDROCHLORIDE
     Dosage: 50 MG, DAILY
     Dates: start: 20250728, end: 20250728
  44. KETAMINE HYDROCHLORIDE [Suspect]
     Active Substance: KETAMINE HYDROCHLORIDE
     Dates: start: 20250515, end: 20250515
  45. KETAMINE HYDROCHLORIDE [Suspect]
     Active Substance: KETAMINE HYDROCHLORIDE
     Dates: start: 20250520, end: 20250520
  46. KETAMINE HYDROCHLORIDE [Suspect]
     Active Substance: KETAMINE HYDROCHLORIDE
     Dates: start: 20250522, end: 20250522
  47. KETAMINE HYDROCHLORIDE [Suspect]
     Active Substance: KETAMINE HYDROCHLORIDE
     Dates: start: 20250527, end: 20250527
  48. KETAMINE HYDROCHLORIDE [Suspect]
     Active Substance: KETAMINE HYDROCHLORIDE
     Dates: start: 20250603, end: 20250603
  49. KETAMINE HYDROCHLORIDE [Suspect]
     Active Substance: KETAMINE HYDROCHLORIDE
     Dates: start: 20250605, end: 20250605
  50. KETAMINE HYDROCHLORIDE [Suspect]
     Active Substance: KETAMINE HYDROCHLORIDE
     Dates: start: 20250610, end: 20250610
  51. KETAMINE HYDROCHLORIDE [Suspect]
     Active Substance: KETAMINE HYDROCHLORIDE
     Dates: start: 20250612, end: 20250612
  52. KETAMINE HYDROCHLORIDE [Suspect]
     Active Substance: KETAMINE HYDROCHLORIDE
     Dates: start: 20250617, end: 20250617
  53. KETAMINE HYDROCHLORIDE [Suspect]
     Active Substance: KETAMINE HYDROCHLORIDE
     Dates: start: 20250619, end: 20250619
  54. KETAMINE HYDROCHLORIDE [Suspect]
     Active Substance: KETAMINE HYDROCHLORIDE
     Dates: start: 20250624, end: 20250624
  55. KETAMINE HYDROCHLORIDE [Suspect]
     Active Substance: KETAMINE HYDROCHLORIDE
     Dates: start: 20250626, end: 20250626
  56. KETAMINE HYDROCHLORIDE [Suspect]
     Active Substance: KETAMINE HYDROCHLORIDE
     Dates: start: 20250707, end: 20250707
  57. Lasea 80 mg [Concomitant]
     Indication: Product used for unknown indication
     Dates: start: 20250507, end: 20250905
  58. ASPIRIN [Concomitant]
     Active Substance: ASPIRIN
     Indication: Product used for unknown indication
     Dosage: 100 MG, DAILY
     Dates: start: 20250507, end: 20250905
  59. Daflon [Concomitant]
     Indication: Product used for unknown indication
     Dates: start: 20250507, end: 20250905
  60. NALTREXONE [Concomitant]
     Active Substance: NALTREXONE
     Indication: Product used for unknown indication
     Dosage: 3 MG, DAILY
     Dates: start: 20250507, end: 20250613
  61. ENOXAPARIN SODIUM [Concomitant]
     Active Substance: ENOXAPARIN SODIUM
     Indication: Product used for unknown indication
     Dosage: 40 MG, DAILY
     Dates: start: 20250513, end: 20250609
  62. ESKETAMINE [Concomitant]
     Active Substance: ESKETAMINE
     Indication: Product used for unknown indication
     Dosage: 50 MG, QW
     Route: 042

REACTIONS (7)
  - Constipation [Recovering/Resolving]
  - Urinary hesitation [Recovering/Resolving]
  - Urinary retention [Recovering/Resolving]
  - Weight increased [Not Recovered/Not Resolved]
  - Underdose [Unknown]
  - Drug level decreased [Recovered/Resolved]
  - Functional gastrointestinal disorder [Recovering/Resolving]

NARRATIVE: CASE EVENT DATE: 20250507
